FAERS Safety Report 4334078-0 (Version None)
Quarter: 2004Q2

REPORT INFORMATION
  Report Type: 
  Country: None (occurrence: None)
  Receive Date: 20040402
  Receipt Date: 20040322
  Transmission Date: 20050107
  Serious: Yes (Hospitalization)
  Sender: FDA-Public Use
  Company Number: 2004019973

PATIENT
  Age: 30 Year
  Sex: Male

DRUGS (4)
  1. GABAPENTIN [Suspect]
     Indication: EPILEPSY
     Dosage: 800 MG (DAILY), ORAL
     Route: 048
     Dates: start: 20020601
  2. PHENYTOIN [Concomitant]
  3. CLONAZEPAM [Concomitant]
  4. GINKGO BILOBA (GINKGO BILOBA) [Concomitant]

REACTIONS (3)
  - FALL [None]
  - HYPERTENSION [None]
  - POST-TRAUMATIC AMNESTIC DISORDER [None]
